FAERS Safety Report 7807256-3 (Version None)
Quarter: 2011Q4

REPORT INFORMATION
  Report Type: 
  Country: None (occurrence: None)
  Receive Date: 20111011
  Receipt Date: 20111006
  Transmission Date: 20120403
  Serious: Yes (Hospitalization, Other)
  Sender: FDA-Public Use
  Company Number: PT-PFIZER INC-2011238626

PATIENT
  Sex: Female

DRUGS (2)
  1. LYRICA [Suspect]
     Dosage: UNK
  2. LYRICA [Suspect]
     Dosage: 80 CAPSULES AT 300 MG (TOTAL DOSE 24G)

REACTIONS (4)
  - SUICIDE ATTEMPT [None]
  - DYSPHORIA [None]
  - INTENTIONAL OVERDOSE [None]
  - IRRITABILITY [None]
